FAERS Safety Report 12963369 (Version 1)
Quarter: 2016Q4

REPORT INFORMATION
  Report Type: Spontaneous
  Country: US (occurrence: US)
  Receive Date: 20161122
  Receipt Date: 20161122
  Transmission Date: 20170207
  Serious: No
  Sender: FDA-Public Use
  Company Number: US-ASTRAZENECA-2016SF21209

PATIENT
  Age: 20456 Day
  Sex: Female
  Weight: 84.4 kg

DRUGS (27)
  1. VITAMIN B COMPLEX [Concomitant]
     Active Substance: CYANOCOBALAMIN\DEXPANTHENOL\NIACINAMIDE\PYRIDOXINE HYDROCHLORIDE\RIBOFLAVIN 5^-PHOSPHATE SODIUM\THIAMINE HYDROCHLORIDE\VITAMIN B COMPLEX
     Dosage: DAILY
     Route: 048
  2. ASPIRIN. [Concomitant]
     Active Substance: ASPIRIN
     Route: 048
  3. ESCITALOPRAM [Concomitant]
     Active Substance: ESCITALOPRAM OXALATE
     Route: 048
  4. MECLAZINE [Concomitant]
     Indication: VERTIGO
     Dosage: 25.0MG UNKNOWN
     Route: 048
  5. NEXIUM [Suspect]
     Active Substance: ESOMEPRAZOLE MAGNESIUM
     Indication: ULCER
     Route: 048
  6. QUETIAPINE FUMARATE. [Suspect]
     Active Substance: QUETIAPINE FUMARATE
     Indication: BIPOLAR DISORDER
     Route: 048
     Dates: start: 2001
  7. VITAMIN C [Concomitant]
     Active Substance: ASCORBIC ACID
     Dosage: DAILY
     Route: 048
  8. NIFEDIPINE. [Concomitant]
     Active Substance: NIFEDIPINE
     Indication: RAYNAUD^S PHENOMENON
     Route: 048
  9. CINNAMON. [Concomitant]
     Active Substance: CINNAMON
     Dosage: DAILY
     Route: 048
  10. ODANSETRON HCL [Concomitant]
     Indication: NAUSEA
     Dosage: 4.0MG AS REQUIRED
     Route: 065
  11. ADVAIR HFA [Concomitant]
     Active Substance: FLUTICASONE PROPIONATE\SALMETEROL XINAFOATE
     Indication: CHRONIC OBSTRUCTIVE PULMONARY DISEASE
     Dosage: TWO TIMES A DAY
     Route: 055
  12. MIRALAX [Concomitant]
     Active Substance: POLYETHYLENE GLYCOL 3350
     Dosage: AT NIGHT
     Route: 065
  13. CHROMIUM PICOLATE [Concomitant]
     Dosage: DAILY
     Route: 048
  14. MG OXIDE [Concomitant]
     Dosage: DAILY
     Route: 048
  15. TUDORZA PRESSAIR [Suspect]
     Active Substance: ACLIDINIUM BROMIDE
     Indication: CHRONIC OBSTRUCTIVE PULMONARY DISEASE
     Route: 055
     Dates: start: 20160629, end: 20160630
  16. ALPRAZALAM [Concomitant]
     Route: 048
  17. CALCIUM WITH VIT D [Concomitant]
     Dosage: DAILY
     Route: 048
  18. THEREMS-M [Concomitant]
     Dosage: DAILY
     Route: 048
  19. CELEBREX [Concomitant]
     Active Substance: CELECOXIB
     Route: 048
  20. RIZATRIPTAN. [Concomitant]
     Active Substance: RIZATRIPTAN
     Indication: MIGRAINE
     Dosage: 10.0MG AS REQUIRED
     Route: 048
  21. TRAZODONE [Concomitant]
     Active Substance: TRAZODONE HYDROCHLORIDE
     Indication: TREMOR
     Route: 048
  22. TRAZODONE [Concomitant]
     Active Substance: TRAZODONE HYDROCHLORIDE
     Indication: SLEEP DISORDER
     Route: 048
  23. FLONASE [Concomitant]
     Active Substance: FLUTICASONE PROPIONATE
     Route: 045
  24. DONEPEZIL HCL [Concomitant]
     Active Substance: DONEPEZIL HYDROCHLORIDE
     Dosage: DAILY
     Route: 048
  25. WELLBUTRIN [Concomitant]
     Active Substance: BUPROPION HYDROCHLORIDE
     Route: 048
  26. GUAIFERESIN [Concomitant]
     Route: 048
  27. FIBER TABLETS [Concomitant]
     Dosage: DAILY
     Route: 048

REACTIONS (7)
  - Heart rate increased [Recovered/Resolved]
  - Intentional product misuse [Unknown]
  - Chest pain [Recovered/Resolved]
  - Drug dose omission [Unknown]
  - Spinal compression fracture [Not Recovered/Not Resolved]
  - Dyspnoea [Recovered/Resolved]
  - Heart rate abnormal [Unknown]

NARRATIVE: CASE EVENT DATE: 201607
